FAERS Safety Report 23452281 (Version 2)
Quarter: 2024Q1

REPORT INFORMATION
  Report Type: Report from Study
  Country: EG (occurrence: EG)
  Receive Date: 20240129
  Receipt Date: 20240202
  Transmission Date: 20240409
  Serious: No
  Sender: FDA-Public Use
  Company Number: EG-002147023-NVSC2024EG018639

PATIENT
  Sex: Male

DRUGS (5)
  1. ENTRESTO [Suspect]
     Active Substance: SACUBITRIL\VALSARTAN
     Indication: Cardiac failure
     Dosage: 50 MG, BID (1 TABLET OF 50 MG, TWICE DAILY)
     Route: 048
     Dates: start: 2020
  2. BISOPROLOL FUMARATE [Concomitant]
     Active Substance: BISOPROLOL FUMARATE
     Indication: Product used for unknown indication
     Dosage: 5 MG, QD (FROM ABOUT 3 YEARS)
     Route: 065
  3. ASPIRIN [Concomitant]
     Active Substance: ASPIRIN
     Indication: Product used for unknown indication
     Dosage: 1 DOSAGE FORM, QD (FROM ABOUT 3 YEARS)
     Route: 065
  4. URAID [Concomitant]
     Indication: Polyuria
     Dosage: 1 DOSAGE FORM, QD (FROM ABOUT 3 YEARS)
     Route: 065
  5. ALLOPURINOL [Concomitant]
     Active Substance: ALLOPURINOL
     Indication: Polyuria
     Dosage: 1 DOSAGE FORM, QD (ABOUT 3 YEARS AGO)
     Route: 065

REACTIONS (1)
  - Renal function test abnormal [Recovering/Resolving]
